FAERS Safety Report 9679936 (Version 1)
Quarter: 2013Q4

REPORT INFORMATION
  Report Type: Report from Study
  Country: TN (occurrence: TN)
  Receive Date: 20131110
  Receipt Date: 20131110
  Transmission Date: 20140711
  Serious: Yes (Other)
  Sender: FDA-Public Use
  Company Number: TN-US-EMD SERONO, INC.-7247730

PATIENT
  Age: 27 Year
  Sex: Female

DRUGS (2)
  1. REBIF [Suspect]
     Indication: MULTIPLE SCLEROSIS
     Route: 058
     Dates: start: 200712, end: 201003
  2. REBIF [Suspect]
     Route: 058
     Dates: start: 201103

REACTIONS (3)
  - Labour complication [Recovered/Resolved]
  - Normal newborn [Recovered/Resolved]
  - Maternal exposure timing unspecified [Recovered/Resolved]
